FAERS Safety Report 4745397-8 (Version None)
Quarter: 2005Q3

REPORT INFORMATION
  Report Type: 
  Country: None (occurrence: None)
  Receive Date: 20050815
  Receipt Date: 20050802
  Transmission Date: 20060218
  Serious: Yes (Other)
  Sender: FDA-Public Use
  Company Number: 2005109363

PATIENT
  Age: 18 Year
  Sex: Male
  Weight: 64.8644 kg

DRUGS (2)
  1. DRAMAMINE [Suspect]
     Indication: INTENTIONAL MISUSE
     Dosage: 12 TABLETS ONCE, ORAL
     Route: 048
     Dates: start: 20050801, end: 20050801
  2. DRAMAMINE [Suspect]
     Indication: OVERDOSE
     Dosage: 12 TABLETS ONCE, ORAL
     Route: 048
     Dates: start: 20050801, end: 20050801

REACTIONS (4)
  - HALLUCINATION, VISUAL [None]
  - INTENTIONAL MISUSE [None]
  - OVERDOSE [None]
  - SPEECH DISORDER [None]
